FAERS Safety Report 23023527 (Version 1)
Quarter: 2023Q4

REPORT INFORMATION
  Report Type: Spontaneous
  Country: US (occurrence: US)
  Receive Date: 20231003
  Receipt Date: 20231003
  Transmission Date: 20240109
  Serious: No
  Sender: FDA-Public Use
  Company Number: US-SANDOZ-SDZ2023US036728

PATIENT
  Sex: Female
  Weight: 84.354 kg

DRUGS (2)
  1. CLOBETASOL [Suspect]
     Active Substance: CLOBETASOL
     Indication: Psoriatic arthropathy
     Route: 065
  2. TRIAMCINOLONE [Suspect]
     Active Substance: TRIAMCINOLONE
     Indication: Psoriatic arthropathy
     Route: 065

REACTIONS (1)
  - Drug ineffective [Unknown]
